FAERS Safety Report 5663472-0 (Version None)
Quarter: 2008Q1

REPORT INFORMATION
  Report Type: 
  Country: None (occurrence: None)
  Receive Date: 20080307
  Receipt Date: 20080222
  Transmission Date: 20080703
  Serious: Yes (Hospitalization)
  Sender: FDA-Public Use
  Company Number: 1-15815109

PATIENT
  Age: 74 Year
  Sex: Female
  Weight: 86.1834 kg

DRUGS (7)
  1. FENTANYL [Suspect]
     Indication: PAIN
     Dosage: 25MCG/HR EVERY 72 HR, TRANSDERMAL
     Route: 062
     Dates: start: 20071113, end: 20080221
  2. LASIX [Concomitant]
  3. PRINIVIL [Concomitant]
  4. INDERAL LA [Concomitant]
  5. POTASSIUM CHLORIDE [Concomitant]
  6. SINGULAIR [Concomitant]
  7. NEXIUM (ESOMEPRAZOLE SODIUM) [Concomitant]

REACTIONS (3)
  - CEREBROVASCULAR ACCIDENT [None]
  - THROMBOSIS [None]
  - THROMBOTIC STROKE [None]
